FAERS Safety Report 9406560 (Version 2)
Quarter: 2013Q3

REPORT INFORMATION
  Report Type: Spontaneous
  Country: BR (occurrence: BR)
  Receive Date: 20130718
  Receipt Date: 20130820
  Transmission Date: 20140515
  Serious: Yes (Hospitalization, Other)
  Sender: FDA-Public Use
  Company Number: BR-AMGEN-BRASP2013049974

PATIENT
  Age: 61 Year
  Sex: Female
  Weight: 100 kg

DRUGS (5)
  1. ENBREL [Suspect]
     Indication: RHEUMATOID ARTHRITIS
     Dosage: 50 MG, ONCE WEEKLY
     Route: 058
     Dates: start: 2011
  2. FUROSEMIDE [Concomitant]
     Dosage: UNK
  3. LOSARTAN [Concomitant]
     Dosage: UNK
  4. ATENSINA [Concomitant]
     Indication: BLOOD PRESSURE INCREASED
     Dosage: UNK
  5. ARAVA [Concomitant]
     Dosage: UNK

REACTIONS (11)
  - Eye disorder [Not Recovered/Not Resolved]
  - Blood pressure increased [Recovering/Resolving]
  - American trypanosomiasis [Unknown]
  - Mouth haemorrhage [Unknown]
  - Epistaxis [Unknown]
  - Emotional disorder [Recovering/Resolving]
  - Drug effect decreased [Unknown]
  - Nodule [Unknown]
  - Wrong technique in drug usage process [Recovered/Resolved]
  - Injection site pain [Recovered/Resolved]
  - Injection site pruritus [Recovered/Resolved]
